FAERS Safety Report 8087032-X (Version None)
Quarter: 2012Q1

REPORT INFORMATION
  Report Type: 
  Country: None (occurrence: None)
  Receive Date: 20120128
  Receipt Date: 20110420
  Transmission Date: 20120608
  Serious: No
  Sender: FDA-Public Use
  Company Number: US-ABBOTT-11P-163-0720910-00

PATIENT
  Sex: Male
  Weight: 74.002 kg

DRUGS (3)
  1. IBUPROFEN [Concomitant]
     Indication: RHEUMATOID ARTHRITIS
  2. HYDROCODONE BITARTRATE [Concomitant]
     Indication: RHEUMATOID ARTHRITIS
  3. HUMIRA [Suspect]
     Indication: RHEUMATOID ARTHRITIS

REACTIONS (3)
  - HERPES ZOSTER [None]
  - RASH [None]
  - RASH PRURITIC [None]
